FAERS Safety Report 9436726 (Version 1)
Quarter: 2013Q3

REPORT INFORMATION
  Report Type: Spontaneous
  Country: BR (occurrence: BR)
  Receive Date: 20130802
  Receipt Date: 20130802
  Transmission Date: 20140515
  Serious: Yes (Hospitalization, Other)
  Sender: FDA-Public Use
  Company Number: BR-JNJFOC-20130715157

PATIENT
  Age: 54 Year
  Sex: Female
  Weight: 60 kg

DRUGS (4)
  1. REMICADE [Suspect]
     Indication: CROHN^S DISEASE
     Dosage: PATIENT^S LAST INFUSION WAS BETWEEN MAY-2013 AND JUN-2013.
     Route: 042
     Dates: end: 2013
  2. REMICADE [Suspect]
     Indication: CROHN^S DISEASE
     Route: 042
     Dates: start: 2009, end: 201207
  3. VITAMINS NOS [Concomitant]
     Route: 065
  4. CONDROFLEX [Concomitant]
     Route: 065

REACTIONS (3)
  - Meningitis herpes [Recovered/Resolved]
  - Decreased immune responsiveness [Unknown]
  - Adverse event [Unknown]
